FAERS Safety Report 12852643 (Version 3)
Quarter: 2016Q4

REPORT INFORMATION
  Report Type: Spontaneous
  Country: US (occurrence: US)
  Receive Date: 20161017
  Receipt Date: 20161123
  Transmission Date: 20170207
  Serious: No
  Sender: FDA-Public Use
  Company Number: US-GLAXOSMITHKLINE-US2016150629

PATIENT
  Age: 20 Year
  Sex: Male

DRUGS (3)
  1. TRANSDERM SCOP [Suspect]
     Active Substance: SCOPOLAMINE
     Dosage: UNK
  2. TRANSDERM SCOP [Suspect]
     Active Substance: SCOPOLAMINE
     Dosage: UNK
  3. TRANSDERM SCOP [Suspect]
     Active Substance: SCOPOLAMINE
     Indication: DROOLING
     Dosage: UNK
     Dates: start: 2011

REACTIONS (5)
  - Therapeutic response unexpected [Unknown]
  - Intentional product use issue [Unknown]
  - Product quality issue [Unknown]
  - Drug administered to patient of inappropriate age [Unknown]
  - Wrong technique in product usage process [Unknown]
